FAERS Safety Report 22654375 (Version 1)
Quarter: 2023Q2

REPORT INFORMATION
  Report Type: Spontaneous
  Country: US (occurrence: US)
  Receive Date: 20230629
  Receipt Date: 20230629
  Transmission Date: 20230722
  Serious: Yes (Other)
  Sender: FDA-Public Use
  Company Number: US-MYLANLABS-2023M1068359

PATIENT
  Age: 52 Year
  Sex: Female

DRUGS (8)
  1. CISPLATIN [Suspect]
     Active Substance: CISPLATIN
     Indication: Neuroendocrine carcinoma
     Dosage: 75 MILLIGRAM/SQ. METER, CYCLE (ON DAY 1)
     Route: 065
  2. ETOPOSIDE [Suspect]
     Active Substance: ETOPOSIDE
     Indication: Neuroendocrine carcinoma
     Dosage: 100 MILLIGRAM/SQ. METER, CYCLE (ON DAYS 1-3)
     Route: 065
  3. CARBOPLATIN [Suspect]
     Active Substance: CARBOPLATIN
     Indication: Neuroendocrine carcinoma
     Dosage: UNK, CYCLE (AUC 5 ON DAY 1)
     Route: 065
  4. SELPERCATINIB [Concomitant]
     Active Substance: SELPERCATINIB
     Indication: Neuroendocrine carcinoma
     Dosage: 160 MILLIGRAM, BID (ON CYCLE 1, DAY 21)
     Route: 065
  5. SELPERCATINIB [Concomitant]
     Active Substance: SELPERCATINIB
     Dosage: 120 MILLIGRAM, BID (DOSE INTERRUPTION FOR 10DAYS)
     Route: 065
  6. SELPERCATINIB [Concomitant]
     Active Substance: SELPERCATINIB
     Dosage: 80 MILLIGRAM, BID (RESTARTED AND INTERRUPTED FOR ANOTHER 10DAYS )
     Route: 065
  7. SELPERCATINIB [Concomitant]
     Active Substance: SELPERCATINIB
     Dosage: 40 MILLIGRAM, BID (RESUMED)
     Route: 065
  8. SELPERCATINIB [Concomitant]
     Active Substance: SELPERCATINIB
     Dosage: 120 MILLIGRAM, BID (TITRATED UP TO 120MG TWICE DAILY OVER 6 MONTHS)
     Route: 065

REACTIONS (3)
  - Neutropenia [Unknown]
  - Chest discomfort [Unknown]
  - Blood pressure increased [Unknown]
